FAERS Safety Report 11073423 (Version 1)
Quarter: 2015Q2

REPORT INFORMATION
  Report Type: Spontaneous
  Country: NO (occurrence: NO)
  Receive Date: 20150428
  Receipt Date: 20150428
  Transmission Date: 20150821
  Serious: Yes (Disabling)
  Sender: FDA-Public Use
  Company Number: NO-ASTRAZENECA-2015SE37462

PATIENT
  Age: 837 Month
  Sex: Female

DRUGS (3)
  1. ATACAND [Suspect]
     Active Substance: CANDESARTAN CILEXETIL
     Indication: HYPERTENSION
     Route: 048
     Dates: start: 201307
  2. MODURETIC MITE [Interacting]
     Active Substance: AMILORIDE HYDROCHLORIDE\HYDROCHLOROTHIAZIDE
     Indication: HYPERTENSION
     Dosage: HYDROCHLOROTHIAZIDE 25 MG + AMILORIDE 2,5 MG EVERY DAY
     Route: 048
     Dates: end: 20141218
  3. LERCANIDIPINE [Interacting]
     Active Substance: LERCANIDIPINE
     Indication: HYPERTENSION
     Route: 048
     Dates: start: 201307

REACTIONS (3)
  - Rash pruritic [Recovering/Resolving]
  - Drug interaction [Unknown]
  - Papule [Recovering/Resolving]

NARRATIVE: CASE EVENT DATE: 201410
